FAERS Safety Report 10207012 (Version 2)
Quarter: 2014Q2

REPORT INFORMATION
  Report Type: Report from Study
  Country: US (occurrence: US)
  Receive Date: 20140530
  Receipt Date: 20140618
  Transmission Date: 20141212
  Serious: Yes (Other)
  Sender: FDA-Public Use
  Company Number: US-IPSEN BIOPHARMACEUTICALS, INC.-2014-2637

PATIENT
  Age: 5 Year
  Sex: Male

DRUGS (3)
  1. INCRELEX [Suspect]
     Indication: INSULIN-LIKE GROWTH FACTOR DECREASED
     Route: 058
     Dates: start: 20081125
  2. INCRELEX [Suspect]
     Route: 058
     Dates: start: 20081111, end: 20081124
  3. INCRELEX [Suspect]
     Route: 058
     Dates: start: 20081028, end: 20081110

REACTIONS (5)
  - Upper limb fracture [Unknown]
  - Appendicitis [Recovered/Resolved]
  - Tonsillar hypertrophy [Unknown]
  - Bronchitis [Unknown]
  - Pharyngitis streptococcal [Unknown]
